FAERS Safety Report 7130783-1 (Version None)
Quarter: 2010Q4

REPORT INFORMATION
  Report Type: 
  Country: None (occurrence: None)
  Receive Date: 20101201
  Receipt Date: 20101117
  Transmission Date: 20110411
  Serious: Yes (Hospitalization, Other)
  Sender: FDA-Public Use
  Company Number: PHHY2010JP41370

PATIENT
  Sex: Female
  Weight: 62 kg

DRUGS (5)
  1. ICL670A ICL+DISTAB [Suspect]
     Indication: IRON OVERLOAD
     Dosage: 1000 MG, DAILY
     Route: 048
     Dates: start: 20081030, end: 20090530
  2. ICL670A ICL+DISTAB [Suspect]
     Dosage: 1000 MG, DAILY
     Dates: start: 20090607
  3. GASTER [Concomitant]
     Indication: GASTRITIS
     Dosage: 20 MG, UNK
     Route: 048
     Dates: start: 20080111
  4. SELBEX [Concomitant]
     Indication: GASTRITIS
     Dosage: 150 MG, UNK
     Dates: start: 20051205
  5. RED CELLS MAP [Concomitant]
     Dosage: 2 UNITS EVERY 4 WEEKS
     Dates: start: 20081113, end: 20091016

REACTIONS (10)
  - ALANINE AMINOTRANSFERASE INCREASED [None]
  - ASPARTATE AMINOTRANSFERASE INCREASED [None]
  - BLOOD ALKALINE PHOSPHATASE INCREASED [None]
  - CHILLS [None]
  - CONSTIPATION [None]
  - EOSINOPHIL COUNT DECREASED [None]
  - PYELONEPHRITIS [None]
  - PYREXIA [None]
  - WHITE BLOOD CELL COUNT DECREASED [None]
  - WHITE BLOOD CELL COUNT INCREASED [None]
